FAERS Safety Report 10184562 (Version 1)
Quarter: 2014Q2

REPORT INFORMATION
  Report Type: Spontaneous
  Country: US (occurrence: US)
  Receive Date: 20140521
  Receipt Date: 20140521
  Transmission Date: 20141212
  Serious: Yes (Other)
  Sender: FDA-Public Use
  Company Number: US-ROCHE-1402463

PATIENT
  Age: 64 Year
  Sex: Female

DRUGS (14)
  1. ACTEMRA [Suspect]
     Indication: RHEUMATOID ARTHRITIS
     Route: 058
     Dates: start: 20140510, end: 20140514
  2. FOLIC ACID [Concomitant]
     Route: 065
     Dates: start: 20140501
  3. METHOTREXATE [Concomitant]
     Route: 065
     Dates: start: 20140423
  4. LEVOTHYROXINE [Concomitant]
     Route: 065
     Dates: start: 20140417
  5. LEVOTHYROXINE [Concomitant]
     Route: 065
     Dates: start: 20140211
  6. AMLODIPINE [Concomitant]
     Dosage: DOSE: 5/20 MG
     Route: 065
     Dates: start: 20140329
  7. PREDNISONE [Concomitant]
     Route: 065
     Dates: start: 20140319
  8. CHLORHEXIDINE [Concomitant]
     Route: 048
     Dates: start: 20140306
  9. ENBREL [Concomitant]
     Route: 065
     Dates: start: 20140303
  10. CRESTOR [Concomitant]
     Route: 065
     Dates: start: 20140220
  11. SULFASALAZINE [Concomitant]
     Route: 065
     Dates: start: 20140220
  12. BYSTOLIC [Concomitant]
     Route: 065
     Dates: start: 20131227
  13. DEXILANT [Concomitant]
     Route: 065
     Dates: start: 20131220
  14. ADVAIR [Concomitant]
     Route: 065
     Dates: start: 20131028

REACTIONS (4)
  - Heart rate increased [Not Recovered/Not Resolved]
  - Chest discomfort [Not Recovered/Not Resolved]
  - Dyspnoea [Not Recovered/Not Resolved]
  - Myocardial infarction [Not Recovered/Not Resolved]
